FAERS Safety Report 7713170-4 (Version None)
Quarter: 2011Q3

REPORT INFORMATION
  Report Type: 
  Country: None (occurrence: None)
  Receive Date: 20110826
  Receipt Date: 20110819
  Transmission Date: 20111222
  Serious: Yes (Hospitalization, Other)
  Sender: FDA-Public Use
  Company Number: PHEH2006US07275

PATIENT
  Sex: Male
  Weight: 58.503 kg

DRUGS (14)
  1. PAXIL [Concomitant]
     Dosage: 20 MG, QD
     Route: 048
  2. OXYCONTIN [Concomitant]
  3. AMOXICILLIN [Concomitant]
  4. TOPROL-XL [Concomitant]
     Dosage: 50 MG, QD
     Route: 048
  5. ALPRAZOLAM [Concomitant]
  6. ASPIRIN [Concomitant]
  7. ATENOLOL [Concomitant]
  8. LOVASTATIN [Concomitant]
  9. ZOMETA [Suspect]
     Indication: METASTASES TO BONE
     Dosage: 4 MG, QW3
     Route: 042
     Dates: start: 20020301, end: 20060101
  10. MEVACOR [Concomitant]
  11. ASPIRIN [Concomitant]
     Dosage: 325 MG, UNK
  12. LUPRON [Concomitant]
  13. ZOCOR [Concomitant]
     Dosage: 80 MG, QD
     Route: 048
  14. CASODEX [Concomitant]

REACTIONS (66)
  - ANHEDONIA [None]
  - URINARY TRACT INFECTION [None]
  - SENSITIVITY OF TEETH [None]
  - CHILLS [None]
  - MYALGIA [None]
  - CHRONIC OBSTRUCTIVE PULMONARY DISEASE [None]
  - OSTEONECROSIS OF JAW [None]
  - OSTEOARTHRITIS [None]
  - EMPHYSEMA [None]
  - DYSPHAGIA [None]
  - WEIGHT DECREASED [None]
  - DEHYDRATION [None]
  - SPINAL CORD COMPRESSION [None]
  - DYSPNOEA [None]
  - LUNG HYPERINFLATION [None]
  - HYPERTENSION [None]
  - CHRONIC SINUSITIS [None]
  - NAUSEA [None]
  - PAIN [None]
  - NIGHT SWEATS [None]
  - PROTEINURIA [None]
  - FATIGUE [None]
  - INFLAMMATION [None]
  - RENAL HAEMORRHAGE [None]
  - FLANK PAIN [None]
  - COUGH [None]
  - OROPHARYNGEAL PLAQUE [None]
  - MUSCULOSKELETAL PAIN [None]
  - URTICARIA [None]
  - BACK PAIN [None]
  - NASAL SEPTUM DEVIATION [None]
  - LOOSE TOOTH [None]
  - ASTHENIA [None]
  - DIZZINESS [None]
  - BONE DISORDER [None]
  - ANXIETY [None]
  - GAIT DISTURBANCE [None]
  - DENTAL CARIES [None]
  - NECK PAIN [None]
  - PRURITUS [None]
  - TINNITUS [None]
  - BONE PAIN [None]
  - HYDRONEPHROSIS [None]
  - RENAL COLIC [None]
  - HAEMATURIA [None]
  - HEPATIC CYST [None]
  - SEPSIS [None]
  - SYNCOPE [None]
  - GINGIVAL DISORDER [None]
  - PAIN IN EXTREMITY [None]
  - ROTATOR CUFF SYNDROME [None]
  - BEREAVEMENT [None]
  - HYPERHIDROSIS [None]
  - VOMITING [None]
  - HYPOTENSION [None]
  - PAIN IN JAW [None]
  - RADICULOPATHY [None]
  - SPLENIC GRANULOMA [None]
  - RENAL CYST [None]
  - DEAFNESS NEUROSENSORY [None]
  - GINGIVITIS [None]
  - HYPOAESTHESIA [None]
  - RASH [None]
  - APHASIA [None]
  - TACHYCARDIA [None]
  - ABDOMINAL PAIN UPPER [None]
